FAERS Safety Report 6946283-5 (Version None)
Quarter: 2010Q3

REPORT INFORMATION
  Report Type: 
  Country: None (occurrence: None)
  Receive Date: 20100824
  Receipt Date: 20100729
  Transmission Date: 20110219
  Serious: Yes (Hospitalization, Other)
  Sender: FDA-Public Use
  Company Number: 2010087435

PATIENT
  Age: 56 Year
  Sex: Male

DRUGS (6)
  1. FRAGMIN [Suspect]
     Indication: FIBRIN D DIMER INCREASED
     Dosage: SUBCUTANEOUS
     Route: 058
     Dates: start: 20100219, end: 20100222
  2. CLOZARIL [Suspect]
     Indication: SCHIZOPHRENIA
     Dosage: 450 MG,  1X/DAY, ORAL
     Route: 048
     Dates: start: 20090928
  3. ASPIRIN [Concomitant]
  4. DIAZEPAM [Concomitant]
  5. METOCLOPRAMIDE [Concomitant]
  6. OMEPRAZOLE [Concomitant]

REACTIONS (8)
  - CHEST X-RAY ABNORMAL [None]
  - DRUG ABUSE [None]
  - DRUG DOSE OMISSION [None]
  - DYSKINESIA [None]
  - NAUSEA [None]
  - PULMONARY EMBOLISM [None]
  - VOMITING [None]
  - WHITE BLOOD CELL COUNT DECREASED [None]
